FAERS Safety Report 17444319 (Version 2)
Quarter: 2020Q1

REPORT INFORMATION
  Report Type: Spontaneous
  Country: US (occurrence: US)
  Receive Date: 20200221
  Receipt Date: 20200309
  Transmission Date: 20200409
  Serious: Yes (Life-Threatening, Hospitalization, Other)
  Sender: FDA-Public Use
  Company Number: US-ASTRAZENECA-2020SE23112

PATIENT
  Age: 24249 Day
  Sex: Female
  Weight: 98 kg

DRUGS (14)
  1. DELTASONE [Concomitant]
     Active Substance: PREDNISONE
     Dosage: 40 MG DAILY FOR 4 DAYS.
     Route: 048
     Dates: start: 20200211
  2. MYCOSTATIN [Concomitant]
     Active Substance: NYSTATIN
     Dosage: APPLYN CREAM TOPICALLY TWICE DAILY TO AFFECTED AREAS AS NEEDED
     Route: 061
     Dates: start: 20190109
  3. JARDIANCE [Concomitant]
     Active Substance: EMPAGLIFLOZIN
  4. GLUCOPHAGE [Concomitant]
     Active Substance: METFORMIN HYDROCHLORIDE
     Indication: TYPE 2 DIABETES MELLITUS
     Route: 048
     Dates: start: 20190723
  5. FARXIGA [Concomitant]
     Active Substance: DAPAGLIFLOZIN PROPANEDIOL
  6. HYDROCHLOROTHIAZIDE. [Concomitant]
     Active Substance: HYDROCHLOROTHIAZIDE
     Indication: HYPERTENSION
     Dates: start: 20190723
  7. LOSARTAN. [Concomitant]
     Active Substance: LOSARTAN
     Indication: HYPERTENSION
     Dates: start: 20190723
  8. EPIPEN-JR [Concomitant]
     Dosage: INJECT 0.3 ML 90.15 MG TOTAL) INTO THE MUSCLE AS NEEDED FOR ANAPHYLAXIS.
     Dates: start: 20200211
  9. GLIMEPIRIDE. [Concomitant]
     Active Substance: GLIMEPIRIDE
     Dates: start: 20190723
  10. HYZAAR [Concomitant]
     Active Substance: HYDROCHLOROTHIAZIDE\LOSARTAN POTASSIUM
     Route: 048
     Dates: start: 20190723
  11. AMLODIPINE [Concomitant]
     Active Substance: AMLODIPINE BESYLATE
     Indication: HYPERTENSION
     Route: 048
     Dates: start: 20190723
  12. BYDUREON BCISE [Suspect]
     Active Substance: EXENATIDE
     Route: 065
     Dates: start: 20200209, end: 20200209
  13. AMARYL [Concomitant]
     Active Substance: GLIMEPIRIDE
     Indication: TYPE 2 DIABETES MELLITUS
     Route: 048
     Dates: start: 20190723
  14. NORVASC [Concomitant]
     Active Substance: AMLODIPINE BESYLATE
     Indication: HYPERTENSION
     Route: 048
     Dates: start: 20190723

REACTIONS (2)
  - Anaphylactic shock [Recovered/Resolved]
  - Blood glucose abnormal [Recovered/Resolved]

NARRATIVE: CASE EVENT DATE: 20200209
